FAERS Safety Report 6332018-6 (Version None)
Quarter: 2009Q3

REPORT INFORMATION
  Report Type: 
  Country: None (occurrence: None)
  Receive Date: 20090828
  Receipt Date: 20090819
  Transmission Date: 20100115
  Serious: Yes (Hospitalization, Other)
  Sender: FDA-Public Use
  Company Number: US-BIOGENIDEC-2009BI026780

PATIENT
  Sex: Female

DRUGS (1)
  1. AVONEX [Suspect]
     Indication: MULTIPLE SCLEROSIS
     Route: 030

REACTIONS (5)
  - IATROGENIC INJURY [None]
  - INTRA-ABDOMINAL HAEMORRHAGE [None]
  - NEPHRECTOMY [None]
  - NEPHROLITHIASIS [None]
  - SEPSIS [None]
